FAERS Safety Report 7072704-6 (Version None)
Quarter: 2010Q4

REPORT INFORMATION
  Report Type: 
  Country: None (occurrence: None)
  Receive Date: 20101029
  Receipt Date: 20100302
  Transmission Date: 20110411
  Serious: No
  Sender: FDA-Public Use
  Company Number: A0847574A

PATIENT
  Age: 80 Year
  Sex: Female

DRUGS (8)
  1. ADVAIR DISKUS 100/50 [Suspect]
     Indication: EMPHYSEMA
     Dosage: 1PUFF TWICE PER DAY
     Route: 055
     Dates: start: 20100227, end: 20100228
  2. ALBUTEROL SULFATE [Concomitant]
  3. IPRATROPIUM BROMIDE [Concomitant]
  4. COUMADIN [Concomitant]
  5. ATENOLOL [Concomitant]
  6. WATER PILL [Concomitant]
  7. PREDNISONE [Concomitant]
  8. FLUDROCORTISONE [Concomitant]

REACTIONS (1)
  - DISORIENTATION [None]
